FAERS Safety Report 15170916 (Version 1)
Quarter: 2018Q3

REPORT INFORMATION
  Report Type: Spontaneous
  Country: CA (occurrence: CA)
  Receive Date: 20180622
  Receipt Date: 20180622
  Transmission Date: 20181010
  Serious: Yes (Hospitalization)
  Sender: FDA-Public Use
  Company Number: None

PATIENT
  Age: 31 Year
  Sex: Male
  Weight: 83.25 kg

DRUGS (3)
  1. ZELDOX [Suspect]
     Active Substance: ZIPRASIDONE
     Indication: SCHIZOPHRENIA
     Dates: start: 20150601, end: 20150705
  2. INVEGA SUSSTENNA [Concomitant]
  3. OLANZAPINE. [Concomitant]
     Active Substance: OLANZAPINE

REACTIONS (9)
  - Suicidal ideation [None]
  - Sensory loss [None]
  - Penis disorder [None]
  - Treatment noncompliance [None]
  - Male sexual dysfunction [None]
  - Hypoaesthesia [None]
  - Nerve injury [None]
  - Loss of libido [None]
  - Sexual dysfunction [None]

NARRATIVE: CASE EVENT DATE: 20150601
